FAERS Safety Report 16834882 (Version 3)
Quarter: 2019Q4

REPORT INFORMATION
  Report Type: Report from Study
  Country: US (occurrence: US)
  Receive Date: 20190920
  Receipt Date: 20191108
  Transmission Date: 20200122
  Serious: Yes (Other)
  Sender: FDA-Public Use
  Company Number: US-MYLANLABS-2019M1088103

PATIENT
  Age: 42 Year
  Sex: Female

DRUGS (4)
  1. CLOZAPINE. [Suspect]
     Active Substance: CLOZAPINE
     Indication: AFFECTIVE DISORDER
  2. CLOZAPINE MYLAN 100 MG, TABLETTEN [Suspect]
     Active Substance: CLOZAPINE
     Indication: AFFECTIVE DISORDER
  3. CLOZAPINE. [Suspect]
     Active Substance: CLOZAPINE
     Indication: THINKING ABNORMAL
     Dosage: 325 MILLIGRAM, QD
     Route: 048
     Dates: start: 20190724, end: 2019
  4. CLOZAPINE MYLAN 100 MG, TABLETTEN [Suspect]
     Active Substance: CLOZAPINE
     Indication: THINKING ABNORMAL
     Dosage: UNK
     Route: 048
     Dates: start: 2019, end: 20190915

REACTIONS (2)
  - Neutropenia [Recovering/Resolving]
  - Leukopenia [Recovered/Resolved]

NARRATIVE: CASE EVENT DATE: 20190913
